FAERS Safety Report 18329787 (Version 2)
Quarter: 2020Q4

REPORT INFORMATION
  Report Type: Spontaneous
  Country: IL (occurrence: IL)
  Receive Date: 20200930
  Receipt Date: 20201127
  Transmission Date: 20210113
  Serious: Yes (Hospitalization, Other)
  Sender: FDA-Public Use
  Company Number: IL-AMGEN-ISRSP2020155714

PATIENT
  Age: 86 Year
  Sex: Female

DRUGS (12)
  1. SOMATULINE [LANREOTIDE] [Concomitant]
     Active Substance: LANREOTIDE
     Indication: ACROMEGALY
     Dosage: 60 MILLIGRAM, QMO
     Route: 058
     Dates: start: 20160329
  2. FUSID [FUROSEMIDE] [Concomitant]
     Active Substance: FUROSEMIDE
     Dosage: 40 MILLIGRAM, BID
     Route: 048
  3. NORVASC [Concomitant]
     Active Substance: AMLODIPINE BESYLATE
     Dosage: 5 MILLIGRAM, QD
     Route: 048
  4. ELTROXIN [Concomitant]
     Active Substance: LEVOTHYROXINE
     Indication: HYPOTHYROIDISM
  5. ELIQUIS [Concomitant]
     Active Substance: APIXABAN
     Dosage: 5 MILLIGRAM, BID
     Route: 048
  6. EUTHYROX [Concomitant]
     Active Substance: LEVOTHYROXINE SODIUM
     Dosage: 50 MICROGRAM, QD
     Route: 048
  7. PROLIA [Suspect]
     Active Substance: DENOSUMAB
     Indication: OSTEOPOROSIS
     Dosage: UNK, Q6MO
     Route: 065
  8. CARDILOC [Concomitant]
     Active Substance: BISOPROLOL FUMARATE
     Dosage: 2.5 MILLIGRAM, BID
     Route: 048
  9. SLOW K [Concomitant]
     Active Substance: POTASSIUM CHLORIDE
     Dosage: 600 MILLIGRAM, BID
     Route: 048
  10. AVILAC [GALACTOSE;LACTOSE ANHYDROUS;LACTULOSE] [Concomitant]
     Dosage: 30 MILLILITER, QD
     Route: 048
  11. SOTACOR [SOTALOL HYDROCHLORIDE] [Concomitant]
     Dosage: 80 MILLIGRAM, BID
     Route: 048
  12. LOSARDEX [Concomitant]
     Active Substance: LOSARTAN POTASSIUM
     Dosage: 12.5 MILLIGRAM, QD
     Route: 048

REACTIONS (10)
  - Complication associated with device [Unknown]
  - Pollakiuria [Unknown]
  - Tachycardia [Unknown]
  - Atrioventricular block [Unknown]
  - Cardiac failure congestive [Unknown]
  - Asthenia [Unknown]
  - Atrial fibrillation [Unknown]
  - Fibrosis [Unknown]
  - Acute coronary syndrome [Unknown]
  - Pulmonary congestion [Recovered/Resolved]

NARRATIVE: CASE EVENT DATE: 20181106
